FAERS Safety Report 5078184-4 (Version None)
Quarter: 2006Q3

REPORT INFORMATION
  Report Type: 
  Country: None (occurrence: None)
  Receive Date: 20060725
  Receipt Date: 20060606
  Transmission Date: 20061208
  Serious: No
  Sender: FDA-Public Use
  Company Number: 2006-BP-06380BP

PATIENT
  Sex: 0

DRUGS (2)
  1. APTIVUS/RITONAVIR CAPSULES [Suspect]
     Indication: URTICARIA
     Dosage: (SEE TEXT, TPV/RTV 250MG/100MG), PO
     Route: 048
  2. FUZEON [Concomitant]

REACTIONS (1)
  - LIP DISCOLOURATION [None]
